FAERS Safety Report 5163418-8 (Version None)
Quarter: 2006Q4

REPORT INFORMATION
  Report Type: 
  Country: None (occurrence: None)
  Receive Date: 20061121
  Receipt Date: 20061113
  Transmission Date: 20070319
  Serious: Yes (Other)
  Sender: FDA-Public Use
  Company Number: B0447223A

PATIENT
  Age: 63 Year
  Sex: Male
  Weight: 117.7538 kg

DRUGS (5)
  1. ESKALITH [Suspect]
     Indication: BIPOLAR DISORDER
     Dosage: 450 MG/ PER DAY/ ORAL
     Route: 048
  2. VALSARTAN [Concomitant]
  3. BUPROPION HYDROCHLORIDE [Concomitant]
  4. IMIPRAMINE [Concomitant]
  5. ALBUTEROL SULFATE [Concomitant]

REACTIONS (5)
  - FREE PROSTATE-SPECIFIC ANTIGEN INCREASED [None]
  - HYPERPARATHYROIDISM [None]
  - HYPOCALCIURIA [None]
  - OEDEMA PERIPHERAL [None]
  - RENAL CYST [None]
